FAERS Safety Report 4811072-4 (Version None)
Quarter: 2005Q4

REPORT INFORMATION
  Report Type: 
  Country: None (occurrence: None)
  Receive Date: 20051025
  Receipt Date: 20051017
  Transmission Date: 20060501
  Serious: Yes (Hospitalization, Other)
  Sender: FDA-Public Use
  Company Number: 2004120337

PATIENT
  Age: 37 Year
  Sex: Male
  Weight: 102.0593 kg

DRUGS (3)
  1. CLARINEX [Suspect]
     Indication: RASH
     Dosage: 5 MG QD ORAL
     Route: 048
     Dates: start: 20041014, end: 20041017
  2. LIPITOR [Suspect]
     Indication: BLOOD CHOLESTEROL INCREASED
     Dosage: 20 MG QD ORAL
     Route: 048
  3. DIOVAN HCT [Suspect]
     Indication: HYPERTENSION
     Dosage: 160MG QD ORAL
     Route: 048

REACTIONS (5)
  - BLOOD POTASSIUM DECREASED [None]
  - DRUG INTERACTION [None]
  - LOSS OF CONSCIOUSNESS [None]
  - ROAD TRAFFIC ACCIDENT [None]
  - SINUSITIS [None]
